FAERS Safety Report 11948584 (Version 1)
Quarter: 2016Q1

REPORT INFORMATION
  Report Type: Spontaneous
  Country: US (occurrence: None)
  Receive Date: 20160121
  Receipt Date: 20160121
  Transmission Date: 20160526
  Serious: Yes (Hospitalization)
  Sender: FDA-Public Use
  Company Number: None

PATIENT
  Age: 79 Year
  Sex: Female
  Weight: 65 kg

DRUGS (1)
  1. TEMOZOLOMIDE. [Suspect]
     Active Substance: TEMOZOLOMIDE
     Dates: end: 20160107

REACTIONS (8)
  - Seizure [None]
  - Headache [None]
  - Cognitive disorder [None]
  - Urinary incontinence [None]
  - Muscle twitching [None]
  - Skin lesion [None]
  - Muscular weakness [None]
  - Partial seizures [None]

NARRATIVE: CASE EVENT DATE: 20160108
